FAERS Safety Report 8680044 (Version 3)
Quarter: 2013Q4

REPORT INFORMATION
  Report Type: Spontaneous
  Country: US (occurrence: US)
  Receive Date: 20120724
  Receipt Date: 20131107
  Transmission Date: 20140711
  Serious: Yes (Hospitalization)
  Sender: FDA-Public Use
  Company Number: US-009507513-1207USA005880

PATIENT
  Sex: Male

DRUGS (4)
  1. PEGINTRON [Suspect]
     Indication: HEPATITIS C
     Dosage: 150 MICROGRAM, QW
     Route: 058
     Dates: start: 201112
  2. VICTRELIS [Suspect]
     Dosage: 800 MG, TID
     Dates: start: 20111226
  3. RIBASPHERE [Suspect]
     Indication: HEPATITIS C
     Dosage: 600 MG, QAM
  4. RIBASPHERE [Suspect]
     Dosage: 400 MG, QPM

REACTIONS (1)
  - Adverse event [Unknown]
